FAERS Safety Report 10415926 (Version 2)
Quarter: 2014Q3

REPORT INFORMATION
  Report Type: Spontaneous
  Country: NL (occurrence: None)
  Receive Date: 20140826
  Receipt Date: 20140903
  Transmission Date: 20150326
  Serious: Yes (Other)
  Sender: FDA-Public Use
  Company Number: 2497615

PATIENT
  Age: 71 Year
  Sex: Male
  Weight: 68 kg

DRUGS (12)
  1. PARACETAMOL [Concomitant]
     Active Substance: ACETAMINOPHEN
  2. ZOPICLON [Concomitant]
     Active Substance: ZOPICLONE
  3. IPRATROPIUM BROMIDE MONOHYDRATE [Concomitant]
  4. CLOPIDOGREL [Concomitant]
     Active Substance: CLOPIDOGREL BISULFATE
  5. COLISTINE [Suspect]
     Active Substance: COLISTIN
     Indication: PNEUMONIA BACTERIAL
     Dosage: 2 DF DOSAGE FORM, 3 DAY
     Route: 042
     Dates: start: 20140723, end: 20140730
  6. POTASSIUM CHLORIDE W/SODIUM CHLORIDE/SODIUM C [Concomitant]
  7. AMIKACIN [Suspect]
     Active Substance: AMIKACIN
     Indication: PNEUMONIA BACTERIAL
     Dosage: 1000 MG MILILGRAM(S), ( 1 DAY)
     Route: 042
     Dates: start: 20140723, end: 20140730
  8. TAMSULOSINE [Concomitant]
     Active Substance: TAMSULOSIN HYDROCHLORIDE
  9. METOPROLOL [Concomitant]
     Active Substance: METOPROLOL
  10. ISOSORBIDE MONONITRATE. [Concomitant]
     Active Substance: ISOSORBIDE MONONITRATE
  11. GLYCOPYRONIUM [Concomitant]
  12. BUDESONIDE. [Concomitant]
     Active Substance: BUDESONIDE

REACTIONS (3)
  - Renal failure [None]
  - Drug interaction [None]
  - Nephropathy toxic [None]

NARRATIVE: CASE EVENT DATE: 20140730
